FAERS Safety Report 15734417 (Version 1)
Quarter: 2018Q4

REPORT INFORMATION
  Report Type: Spontaneous
  Country: US (occurrence: US)
  Receive Date: 20181203
  Receipt Date: 20181203
  Transmission Date: 20190205
  Serious: No
  Sender: FDA-Public Use
  Company Number: None

PATIENT
  Age: 56 Year

DRUGS (1)
  1. MYCOPHENOLATE MOFETIL TABLET [Suspect]
     Active Substance: MYCOPHENOLATE MOFETIL
     Dates: start: 201811

REACTIONS (2)
  - Epistaxis [None]
  - Muscular weakness [None]

NARRATIVE: CASE EVENT DATE: 20181201
